FAERS Safety Report 8170432-7 (Version None)
Quarter: 2012Q1

REPORT INFORMATION
  Report Type: 
  Country: None (occurrence: None)
  Receive Date: 20120104
  Receipt Date: 20120104
  Transmission Date: 20120608
  Serious: No
  Sender: FDA-Public Use
  Company Number: 2011HGS-002788

PATIENT
  Age: 41 Year
  Sex: Female
  Weight: 66.6788 kg

DRUGS (5)
  1. BENLYSTA [Suspect]
     Indication: SYSTEMIC LUPUS ERYTHEMATOSUS
     Dosage: 709 MG,1 IN 28 D, INTRAVENOUS DRIP,  690 MG, INTRAVENOUS DRIP
     Route: 041
     Dates: start: 20110812
  2. AMBIEN CR(ZOLPIDEM TARTRATE)(ZOLPIDEM TARTRATE) [Concomitant]
  3. SYNTHROID(LEVOTHYROXINE SODIUM)(LEVOTHYROXINE SODIUM) [Concomitant]
  4. PLAQUENIL (HYDROXYCHLOROQUINE SULFATE)(HYDROXYCHLOROQUINE SULFATE) [Concomitant]
  5. PROCARDIA(NIFEDIPINE) (NIFEDIPINE) [Concomitant]

REACTIONS (2)
  - HEADACHE [None]
  - NAUSEA [None]
